FAERS Safety Report 15037912 (Version 2)
Quarter: 2018Q3

REPORT INFORMATION
  Report Type: Spontaneous
  Country: US (occurrence: US)
  Receive Date: 20180620
  Receipt Date: 20180918
  Transmission Date: 20181010
  Serious: No
  Sender: FDA-Public Use
  Company Number: US-ACTELION-A-US2017-153840

PATIENT
  Age: 55 Year
  Sex: Female

DRUGS (8)
  1. ADCIRCA [Concomitant]
     Active Substance: TADALAFIL
  2. UPTRAVI [Suspect]
     Active Substance: SELEXIPAG
     Indication: PRODUCT USED FOR UNKNOWN INDICATION
     Dosage: 1200 MCG, BID
     Route: 048
     Dates: start: 20170903
  3. UPTRAVI [Suspect]
     Active Substance: SELEXIPAG
     Dosage: 600 MCG, BID
     Route: 048
  4. ORENITRAM [Suspect]
     Active Substance: TREPROSTINIL
     Indication: PRODUCT USED FOR UNKNOWN INDICATION
     Route: 065
  5. VENTAVIS [Concomitant]
     Active Substance: ILOPROST
     Indication: PRODUCT USED FOR UNKNOWN INDICATION
     Route: 055
  6. AMBRISENTAN [Suspect]
     Active Substance: AMBRISENTAN
     Indication: PRODUCT USED FOR UNKNOWN INDICATION
     Dosage: 10 MG, QD
     Route: 065
     Dates: start: 20160205
  7. LIPITOR [Suspect]
     Active Substance: ATORVASTATIN CALCIUM
     Indication: PRODUCT USED FOR UNKNOWN INDICATION
     Route: 065
  8. UPTRAVI [Suspect]
     Active Substance: SELEXIPAG
     Dosage: 200 MCG, BID
     Route: 048

REACTIONS (31)
  - Arthralgia [Not Recovered/Not Resolved]
  - Back pain [Not Recovered/Not Resolved]
  - Palpitations [Not Recovered/Not Resolved]
  - Dyspnoea exertional [Not Recovered/Not Resolved]
  - Adverse event [Unknown]
  - Diarrhoea [Not Recovered/Not Resolved]
  - Hypotension [Unknown]
  - Heart rate increased [Not Recovered/Not Resolved]
  - Myalgia [Not Recovered/Not Resolved]
  - Faeces soft [Unknown]
  - Influenza [Unknown]
  - Musculoskeletal pain [Not Recovered/Not Resolved]
  - Weight fluctuation [Not Recovered/Not Resolved]
  - Chest discomfort [Not Recovered/Not Resolved]
  - Pulmonary arterial pressure [Unknown]
  - Cough [Unknown]
  - Flushing [Not Recovered/Not Resolved]
  - Headache [Not Recovered/Not Resolved]
  - Nausea [Not Recovered/Not Resolved]
  - Chest pain [Not Recovered/Not Resolved]
  - Pain in jaw [Not Recovered/Not Resolved]
  - Nasal congestion [Unknown]
  - Fatigue [Not Recovered/Not Resolved]
  - Pain [Not Recovered/Not Resolved]
  - Throat irritation [Unknown]
  - Muscle spasms [Not Recovered/Not Resolved]
  - Feeling abnormal [Not Recovered/Not Resolved]
  - Pain in extremity [Unknown]
  - Dizziness [Not Recovered/Not Resolved]
  - Pulmonary congestion [Unknown]
  - Hot flush [Not Recovered/Not Resolved]
